FAERS Safety Report 5761782-X (Version None)
Quarter: 2008Q2

REPORT INFORMATION
  Report Type: 
  Country: None (occurrence: None)
  Receive Date: 20080603
  Receipt Date: 20080520
  Transmission Date: 20081010
  Serious: Yes (Other)
  Sender: FDA-Public Use
  Company Number: WAES 0805USA04656

PATIENT
  Age: 53 Year
  Sex: Male

DRUGS (2)
  1. ZETIA [Suspect]
     Dosage: PO
     Route: 048
  2. ATORVASTATIN [Concomitant]

REACTIONS (8)
  - ABDOMINAL DISTENSION [None]
  - BILE DUCT OBSTRUCTION [None]
  - CHOLELITHIASIS [None]
  - CONSTIPATION [None]
  - HEPATIC STEATOSIS [None]
  - PANCREATIC DUCT DILATATION [None]
  - PANCREATIC PSEUDOCYST [None]
  - PANCREATITIS CHRONIC [None]
